FAERS Safety Report 7774438-9 (Version None)
Quarter: 2011Q3

REPORT INFORMATION
  Report Type: 
  Country: None (occurrence: None)
  Receive Date: 20110923
  Receipt Date: 20110914
  Transmission Date: 20111222
  Serious: Yes (Death)
  Sender: FDA-Public Use
  Company Number: FR-SANOFI-AVENTIS-A02200502256

PATIENT
  Age: 6 Year
  Sex: Male
  Weight: 24 kg

DRUGS (1)
  1. ZOLPIDEM [Suspect]
     Dosage: UNIT DOSE: 10 MG
     Route: 048

REACTIONS (9)
  - EXPOSURE DURING BREAST FEEDING [None]
  - FLATULENCE [None]
  - MATERNAL EXPOSURE DURING PREGNANCY [None]
  - DROWNING [None]
  - OVERDOSE [None]
  - SOMNOLENCE [None]
  - OFF LABEL USE [None]
  - AUTISM [None]
  - ABDOMINAL DISTENSION [None]
